FAERS Safety Report 12677091 (Version 5)
Quarter: 2018Q1

REPORT INFORMATION
  Report Type: Report from Study
  Country: FR (occurrence: FR)
  Receive Date: 20160823
  Receipt Date: 20180222
  Transmission Date: 20180508
  Serious: Yes (Hospitalization)
  Sender: FDA-Public Use
  Company Number: FR-ROCHE-1815851

PATIENT
  Age: 60 Year
  Sex: Female
  Weight: 50 kg

DRUGS (17)
  1. VEMURAFENIB. [Suspect]
     Active Substance: VEMURAFENIB
     Indication: MALIGNANT MELANOMA
     Dosage: LAST DOSE ORIOR TO SAE WAS 13/AUG/2016 DOSE OF 1920?CULMUNITATIVE SINCE FIRST ADMINISTARTION 20160?F
     Route: 048
     Dates: start: 20160805
  2. ACETAMINOPHEN. [Concomitant]
     Active Substance: ACETAMINOPHEN
     Indication: PAIN
     Route: 048
     Dates: start: 20160606
  3. VEMURAFENIB. [Suspect]
     Active Substance: VEMURAFENIB
     Dosage: 1440 MG/DAY
     Route: 048
     Dates: start: 20160830, end: 20160901
  4. VEMURAFENIB. [Suspect]
     Active Substance: VEMURAFENIB
     Dosage: 960MG/DAY
     Route: 048
     Dates: start: 20160815, end: 20160823
  5. VEMURAFENIB. [Suspect]
     Active Substance: VEMURAFENIB
     Dosage: 960 MG/DAY
     Route: 048
     Dates: start: 20160826, end: 20160828
  6. DIFFU K [Concomitant]
     Active Substance: POTASSIUM CHLORIDE
     Indication: INSOMNIA
     Route: 048
     Dates: start: 20160606
  7. VEMURAFENIB. [Suspect]
     Active Substance: VEMURAFENIB
     Dosage: 480MG/DAY
     Route: 048
     Dates: start: 20160824, end: 20160825
  8. CORTANCYL [Concomitant]
     Active Substance: PREDNISONE
     Dosage: INDICATION: CONSTIPATION PREVENTION
     Route: 048
     Dates: start: 20160606
  9. COBIMETINIB. [Suspect]
     Active Substance: COBIMETINIB
     Route: 048
     Dates: start: 20160813
  10. FORLAX [Concomitant]
     Active Substance: POLYETHYLENE GLYCOL 4000
     Dosage: INDICATION: CONSTIPATION PREVENTION
     Route: 048
     Dates: start: 20160606
  11. INEXIUM [Concomitant]
     Active Substance: ESOMEPRAZOLE
     Dosage: INDICATION: CONSTIPATION PREVENTION
     Route: 048
     Dates: start: 20160606
  12. VEMURAFENIB. [Suspect]
     Active Substance: VEMURAFENIB
     Dosage: 200 MG/DAY
     Route: 048
     Dates: start: 20160829, end: 20160829
  13. VEMURAFENIB. [Suspect]
     Active Substance: VEMURAFENIB
     Route: 048
     Dates: start: 20160813
  14. VEMURAFENIB. [Suspect]
     Active Substance: VEMURAFENIB
     Dosage: 720 MG/DAY
     Route: 048
     Dates: start: 20160902
  15. COBIMETINIB. [Suspect]
     Active Substance: COBIMETINIB
     Indication: MALIGNANT MELANOMA
     Dosage: LAST DOSE ORIOR TO SAE WAS 13/AUG/2016 DOSE OF 60 MG?CULMUNITATIVE SINCE FIRST ADMINISTARTION 660MG
     Route: 048
     Dates: start: 20160805
  16. STILNOX [Concomitant]
     Active Substance: ZOLPIDEM TARTRATE
     Indication: INSOMNIA
     Route: 048
     Dates: start: 20160606
  17. KEPPRA [Concomitant]
     Active Substance: LEVETIRACETAM
     Indication: EPILEPSY
     Dosage: INDICATION:EPILEPSY PREVENTION
     Route: 048
     Dates: start: 20160701

REACTIONS (3)
  - Hepatocellular injury [Recovered/Resolved]
  - Creatinine renal clearance decreased [Recovered/Resolved]
  - Dermatitis exfoliative generalised [Recovered/Resolved]

NARRATIVE: CASE EVENT DATE: 20160813
